FAERS Safety Report 5130686-8 (Version None)
Quarter: 2006Q4

REPORT INFORMATION
  Report Type: 
  Country: None (occurrence: None)
  Receive Date: 20061019
  Receipt Date: 20060811
  Transmission Date: 20070319
  Serious: Yes (Other)
  Sender: FDA-Public Use
  Company Number: DE-SOLVAY-00306002647

PATIENT
  Sex: Male

DRUGS (1)
  1. ANDROTOP GEL 25 MG [Suspect]
     Indication: OSTEOPOROSIS
     Dosage: DAILY DOSE:  UNKNOWN
     Route: 065

REACTIONS (2)
  - DIARRHOEA [None]
  - HEPATITIS [None]
